FAERS Safety Report 23556011 (Version 5)
Quarter: 2024Q2

REPORT INFORMATION
  Report Type: Report from Study
  Country: GR (occurrence: GR)
  Receive Date: 20240222
  Receipt Date: 20240514
  Transmission Date: 20240717
  Serious: Yes (Hospitalization)
  Sender: FDA-Public Use
  Company Number: GR-ABBVIE-5647412

PATIENT
  Age: 73 Year
  Sex: Male

DRUGS (4)
  1. CARBIDOPA\LEVODOPA [Suspect]
     Active Substance: CARBIDOPA\LEVODOPA
     Indication: Parkinson^s disease
     Dosage: MORNING DOSE: 12.0ML; CONTINUOUS RATE: 3.8ML/H; EXTRA DOSE: 1.7ML
     Route: 050
     Dates: start: 20220509
  2. CARBIDOPA\LEVODOPA [Suspect]
     Active Substance: CARBIDOPA\LEVODOPA
     Dosage: MORNING DOSE: 12.0ML; CONTINUOUS RATE: 3.8ML/H; EXTRA DOSE: 1.7ML
     Route: 050
  3. CARBIDOPA\LEVODOPA [Suspect]
     Active Substance: CARBIDOPA\LEVODOPA
     Dosage: MORNING DOSE: 12.0ML; CONTINUOUS RATE: 4.0ML/H; EXTRA DOSE: 1.7ML
     Route: 050
  4. CARBIDOPA\LEVODOPA [Suspect]
     Active Substance: CARBIDOPA\LEVODOPA
     Dosage: MORNING DOSE: 12.0ML; CONTINUOUS RATE: 3.8ML/H; EXTRA DOSE: 1.7ML
     Route: 050

REACTIONS (8)
  - C-reactive protein increased [Unknown]
  - Haematocrit decreased [Recovered/Resolved]
  - Hypophagia [Recovered/Resolved]
  - Product quality issue [Recovering/Resolving]
  - Respiratory tract infection [Recovered/Resolved]
  - Atrial fibrillation [Recovered/Resolved]
  - Nausea [Recovered/Resolved]
  - Decreased appetite [Recovered/Resolved]

NARRATIVE: CASE EVENT DATE: 20240211
